FAERS Safety Report 24152683 (Version 2)
Quarter: 2024Q4

REPORT INFORMATION
  Report Type: Spontaneous
  Country: US (occurrence: US)
  Receive Date: 20240730
  Receipt Date: 20241121
  Transmission Date: 20250114
  Serious: No
  Sender: SANOFI AVENTIS
  Company Number: US-SA-SAC20240723000715

PATIENT
  Age: 66 Year
  Sex: Female

DRUGS (3)
  1. DUPIXENT [Suspect]
     Active Substance: DUPILUMAB
     Indication: Eczema
     Dosage: 600 MG, 1X
     Route: 058
     Dates: start: 20240530, end: 20240530
  2. DUPIXENT [Suspect]
     Active Substance: DUPILUMAB
     Dosage: 300 MG, QOW
     Route: 058
     Dates: start: 202406, end: 20241017
  3. AMLODIPINE [Suspect]
     Active Substance: AMLODIPINE BESYLATE
     Dosage: UNK
     Dates: start: 2024

REACTIONS (8)
  - Joint swelling [Unknown]
  - Muscle spasms [Unknown]
  - Pain in extremity [Recovering/Resolving]
  - Abnormal loss of weight [Unknown]
  - Eczema [Unknown]
  - Rash macular [Unknown]
  - Pruritus [Unknown]
  - Gait disturbance [Unknown]

NARRATIVE: CASE EVENT DATE: 20240101
